APPROVED DRUG PRODUCT: VORICONAZOLE
Active Ingredient: VORICONAZOLE
Strength: 200MG
Dosage Form/Route: TABLET;ORAL
Application: A203503 | Product #002 | TE Code: AB
Applicant: GLENMARK PHARMACEUTICALS LTD
Approved: Sep 2, 2015 | RLD: No | RS: No | Type: RX